FAERS Safety Report 21599520 (Version 1)
Quarter: 2022Q4

REPORT INFORMATION
  Report Type: Spontaneous
  Country: None (occurrence: CA)
  Receive Date: 20221115
  Receipt Date: 20221115
  Transmission Date: 20230113
  Serious: Yes (Other)
  Sender: FDA-Public Use
  Company Number: CA-B.Braun Medical Inc.-2134901

PATIENT
  Age: 53 Year
  Sex: Female

DRUGS (30)
  1. ACETAMINOPHEN [Suspect]
     Active Substance: ACETAMINOPHEN
     Indication: Pruritus
  2. ACETAMINOPHEN AND CODEINE [Suspect]
     Active Substance: ACETAMINOPHEN\CODEINE PHOSPHATE
  3. ALBUTEROL [Suspect]
     Active Substance: ALBUTEROL
  4. ALENDRONATE SODIUM [Suspect]
     Active Substance: ALENDRONATE SODIUM
  5. ALENDRONATE SODIUM\CHOLECALCIFEROL [Suspect]
     Active Substance: ALENDRONATE SODIUM\CHOLECALCIFEROL
  6. AMITRIPTYLINE [Suspect]
     Active Substance: AMITRIPTYLINE
  7. FUROSEMIDE [Suspect]
     Active Substance: FUROSEMIDE
  8. SULFAMETHOXAZOLE\TRIMETHOPRIM [Suspect]
     Active Substance: SULFAMETHOXAZOLE\TRIMETHOPRIM
  9. PERINDOPRIL ARGININE [Suspect]
     Active Substance: PERINDOPRIL ARGININE
  10. ATROVENT HFA [Suspect]
     Active Substance: IPRATROPIUM BROMIDE
  11. BREO ELLIPTA [Suspect]
     Active Substance: FLUTICASONE FUROATE\VILANTEROL TRIFENATATE
  12. BUPROPION [Suspect]
     Active Substance: BUPROPION
  13. CAFFEINE [Suspect]
     Active Substance: CAFFEINE
  14. CEFUROXIME AXETIL [Suspect]
     Active Substance: CEFUROXIME AXETIL
  15. CELEBREX [Suspect]
     Active Substance: CELECOXIB
  16. CEPHALEXIN [Suspect]
     Active Substance: CEPHALEXIN
  17. CIPROFLOXACIN [Suspect]
     Active Substance: CIPROFLOXACIN
  18. CLOPIDOGREL [Suspect]
     Active Substance: CLOPIDOGREL BISULFATE
  19. CODEINE [Suspect]
     Active Substance: CODEINE
  20. CYMBALTA [Suspect]
     Active Substance: DULOXETINE HYDROCHLORIDE
  21. CYPROHEPTADINE HYDROCHLORIDE [Suspect]
     Active Substance: CYPROHEPTADINE HYDROCHLORIDE
  22. FERROUS GLUCONATE [Suspect]
     Active Substance: FERROUS GLUCONATE
  23. FLOVENT [Suspect]
     Active Substance: FLUTICASONE PROPIONATE
  24. GABAPENTIN [Suspect]
     Active Substance: GABAPENTIN
  25. NITROGLYCERIN [Suspect]
     Active Substance: NITROGLYCERIN
  26. UNSPECIFIED INGREDIENT [Suspect]
     Active Substance: UNSPECIFIED INGREDIENT
  27. INDOMETHACIN [Suspect]
     Active Substance: INDOMETHACIN
  28. INDOMETHACIN SODIUM [Suspect]
     Active Substance: INDOMETHACIN SODIUM
  29. INDOMETHACIN [Suspect]
     Active Substance: INDOMETHACIN
  30. INSULIN ASPART [Suspect]
     Active Substance: INSULIN ASPART

REACTIONS (30)
  - Abdominal pain [Not Recovered/Not Resolved]
  - Abdominal pain upper [Not Recovered/Not Resolved]
  - Agitation [Not Recovered/Not Resolved]
  - Anxiety [Not Recovered/Not Resolved]
  - Bronchitis [Not Recovered/Not Resolved]
  - Cystitis [Not Recovered/Not Resolved]
  - Depression [Not Recovered/Not Resolved]
  - Diarrhoea [Not Recovered/Not Resolved]
  - Dizziness [Not Recovered/Not Resolved]
  - Fatigue [Not Recovered/Not Resolved]
  - Feeling abnormal [Not Recovered/Not Resolved]
  - Fibromyalgia [Not Recovered/Not Resolved]
  - Fluid retention [Not Recovered/Not Resolved]
  - Hallucination [Not Recovered/Not Resolved]
  - Hyperhidrosis [Not Recovered/Not Resolved]
  - Lymphoedema [Not Recovered/Not Resolved]
  - Malaise [Not Recovered/Not Resolved]
  - Migraine [Not Recovered/Not Resolved]
  - Myocardial infarction [Not Recovered/Not Resolved]
  - Oesophageal pain [Not Recovered/Not Resolved]
  - Oesophageal spasm [Not Recovered/Not Resolved]
  - Pneumonia [Not Recovered/Not Resolved]
  - Pruritus [Not Recovered/Not Resolved]
  - Rash [Not Recovered/Not Resolved]
  - Sleep apnoea syndrome [Not Recovered/Not Resolved]
  - Stomatitis [Not Recovered/Not Resolved]
  - Tinnitus [Not Recovered/Not Resolved]
  - Urticaria [Not Recovered/Not Resolved]
  - Vision blurred [Not Recovered/Not Resolved]
  - Vomiting [Not Recovered/Not Resolved]
